FAERS Safety Report 26115060 (Version 1)
Quarter: 2025Q4

REPORT INFORMATION
  Report Type: Spontaneous
  Country: GB (occurrence: GB)
  Receive Date: 20251203
  Receipt Date: 20251203
  Transmission Date: 20260117
  Serious: Yes (Other)
  Sender: RANBAXY
  Company Number: GB-MHRA-MED-202511181341138450-ZQNLB

PATIENT

DRUGS (1)
  1. RISPERIDONE [Suspect]
     Active Substance: RISPERIDONE
     Indication: Product used for unknown indication
     Dosage: UNK
     Route: 065

REACTIONS (18)
  - Headache [Recovering/Resolving]
  - Urinary incontinence [Recovered/Resolved]
  - Tearfulness [Recovered/Resolved]
  - Depressed mood [Recovering/Resolving]
  - Asthenia [Unknown]
  - Abnormal weight gain [Unknown]
  - Hypotension [Unknown]
  - Breast pain [Recovering/Resolving]
  - Flatulence [Unknown]
  - Sleep terror [Unknown]
  - Poor quality sleep [Unknown]
  - Dysmenorrhoea [Unknown]
  - Panic reaction [Unknown]
  - Panic attack [Unknown]
  - Anxiety [Unknown]
  - Vision blurred [Not Recovered/Not Resolved]
  - Urine output [Unknown]
  - Nocturnal fear [Recovering/Resolving]
